FAERS Safety Report 5127649-5 (Version None)
Quarter: 2006Q4

REPORT INFORMATION
  Report Type: 
  Country: None (occurrence: None)
  Receive Date: 20061011
  Receipt Date: 20060929
  Transmission Date: 20070319
  Serious: Yes (Other)
  Sender: FDA-Public Use
  Company Number: 2006AL003008

PATIENT
  Age: 17 Year
  Sex: Male

DRUGS (1)
  1. FLUOXETINE ORAL SOLUTION USP, 20MG/5 ML (ALPHARMA) (FLUOXETINE ORAL SO [Suspect]
     Indication: DEPRESSION
     Dosage: PO
     Route: 048
     Dates: start: 20060816, end: 20060901

REACTIONS (4)
  - HAEMORRHAGE [None]
  - MALAISE [None]
  - RASH [None]
  - URTICARIA [None]
